FAERS Safety Report 18568031 (Version 1)
Quarter: 2020Q4

REPORT INFORMATION
  Report Type: Spontaneous
  Country: US (occurrence: US)
  Receive Date: 20201202
  Receipt Date: 20201202
  Transmission Date: 20210114
  Serious: No
  Sender: FDA-Public Use
  Company Number: US-ALLERGAN-2021129US

PATIENT
  Sex: Female
  Weight: 61.7 kg

DRUGS (5)
  1. MAGNESIUM OXIDE. [Concomitant]
     Active Substance: MAGNESIUM OXIDE
     Route: 048
  2. MEMANTINE HCL UNK [Suspect]
     Active Substance: MEMANTINE HYDROCHLORIDE
     Indication: MIGRAINE
     Dosage: UNK
  3. NAPROXEN SODIUM/SUMATRIPTAN SUCCINATE [Concomitant]
     Dosage: UNK, QD
     Route: 048
  4. ETHINYLESTRADIOL W/NORETHINDRONE [Concomitant]
     Active Substance: ETHINYL ESTRADIOL\NORETHINDRONE
     Route: 023
  5. ETHINYLESTRADIOL W/FER FUM/NORETHINDRONE [Concomitant]
     Dosage: 1 DF, QD
     Route: 048

REACTIONS (2)
  - Drug ineffective for unapproved indication [Unknown]
  - Off label use [Unknown]
